FAERS Safety Report 22239999 (Version 2)
Quarter: 2023Q4

REPORT INFORMATION
  Report Type: Spontaneous
  Country: US (occurrence: US)
  Receive Date: 20230421
  Receipt Date: 20231005
  Transmission Date: 20240110
  Serious: No
  Sender: FDA-Public Use
  Company Number: US-THERATECHNOLOGIES INC.-2023-THE-IBA-000123

PATIENT

DRUGS (4)
  1. TROGARZO [Suspect]
     Active Substance: IBALIZUMAB-UIYK
     Indication: HIV infection
     Dosage: SINGLE LOADING DOSE OF 2,000 MG
     Route: 042
     Dates: start: 202201, end: 202201
  2. TROGARZO [Suspect]
     Active Substance: IBALIZUMAB-UIYK
     Dosage: MAINTENANCE DOSE OF 800 MG EVERY 2 WEEKS
     Route: 042
     Dates: start: 202201, end: 20230307
  3. TROGARZO [Suspect]
     Active Substance: IBALIZUMAB-UIYK
     Dosage: MAINTENANCE DOSE OF 800 MG EVERY 2 WEEKS
     Route: 042
     Dates: start: 20230328
  4. TROGARZO [Suspect]
     Active Substance: IBALIZUMAB-UIYK
     Dosage: EVERY 2 WEEKS (Q2WEEK)
     Route: 042

REACTIONS (2)
  - Incorrect dose administered [Recovered/Resolved]
  - Nausea [Not Recovered/Not Resolved]

NARRATIVE: CASE EVENT DATE: 20230328
